FAERS Safety Report 16793727 (Version 1)
Quarter: 2019Q3

REPORT INFORMATION
  Report Type: Spontaneous
  Country: GB (occurrence: GB)
  Receive Date: 20190911
  Receipt Date: 20190911
  Transmission Date: 20191005
  Serious: Yes (Other)
  Sender: FDA-Public Use
  Company Number: GB-TEVA-2019-GB-1104015

PATIENT
  Age: 39 Year
  Sex: Female
  Weight: 54 kg

DRUGS (2)
  1. NITROFURANTOIN. [Suspect]
     Active Substance: NITROFURANTOIN
     Dosage: FOR 7 DAYS 200 MG 1 DAYS
     Dates: start: 20190605, end: 20190612
  2. AMOXICILLIN. [Concomitant]
     Active Substance: AMOXICILLIN
     Dosage: FOR 7 DAYS. 3 DOSAGE FORMS 1 DAYS
     Dates: start: 20190531, end: 20190607

REACTIONS (1)
  - Dermatitis allergic [Recovered/Resolved]
